FAERS Safety Report 17188358 (Version 2)
Quarter: 2020Q1

REPORT INFORMATION
  Report Type: Report from Study
  Country: US (occurrence: US)
  Receive Date: 20191221
  Receipt Date: 20200124
  Transmission Date: 20200409
  Serious: No
  Sender: FDA-Public Use
  Company Number: NVSC2019US025399

PATIENT
  Age: 84 Year
  Sex: Female
  Weight: 37.19 kg

DRUGS (2)
  1. LAMPRENE [Suspect]
     Active Substance: CLOFAZIMINE
     Indication: MYCOBACTERIUM AVIUM COMPLEX INFECTION
     Dosage: 50 OT, QD
     Route: 048
     Dates: start: 20180227
  2. VERAPAMIL [Concomitant]
     Active Substance: VERAPAMIL HYDROCHLORIDE
     Indication: RAYNAUD^S PHENOMENON
     Dosage: 90 MG, QD
     Route: 065
     Dates: start: 201804

REACTIONS (3)
  - Tremor [Unknown]
  - Insomnia [Not Recovered/Not Resolved]
  - Cough [Not Recovered/Not Resolved]

NARRATIVE: CASE EVENT DATE: 201907
